FAERS Safety Report 18323788 (Version 1)
Quarter: 2020Q3

REPORT INFORMATION
  Report Type: Other
  Country: IR (occurrence: IR)
  Receive Date: 20200928
  Receipt Date: 20200928
  Transmission Date: 20201105
  Serious: Yes (Death, Life-Threatening, Hospitalization)
  Sender: FDA-Public Use
  Company Number: IR-NOSTRUM LABORATORIES, INC.-2092248

PATIENT
  Age: 4 Year
  Sex: Female

DRUGS (1)
  1. OPIUM. [Suspect]
     Active Substance: OPIUM
     Indication: THERMAL BURN
     Route: 003

REACTIONS (2)
  - Pneumonia aspiration [Fatal]
  - Accidental overdose [Fatal]
